FAERS Safety Report 6757941-X (Version None)
Quarter: 2010Q2

REPORT INFORMATION
  Report Type: 
  Country: None (occurrence: None)
  Receive Date: 20100607
  Receipt Date: 20100507
  Transmission Date: 20101027
  Serious: No
  Sender: FDA-Public Use
  Company Number: US-BAYER-201022908NA

PATIENT
  Age: 56 Year
  Sex: Female
  Weight: 67 kg

DRUGS (2)
  1. ULTRAVIST (PHARMACY BULK) [Suspect]
     Indication: UROGRAM
     Dosage: TOTAL DAILY DOSE: 125 ML  UNIT DOSE: 500 ML
     Route: 042
     Dates: start: 20100507, end: 20100507
  2. READI-CAT [Concomitant]
     Route: 048
     Dates: start: 20100507, end: 20100507

REACTIONS (2)
  - NASAL CONGESTION [None]
  - SENSATION OF FOREIGN BODY [None]
